FAERS Safety Report 8186792-7 (Version None)
Quarter: 2012Q1

REPORT INFORMATION
  Report Type: 
  Country: None (occurrence: None)
  Receive Date: 20120306
  Receipt Date: 20120306
  Transmission Date: 20120608
  Serious: No
  Sender: FDA-Public Use
  Company Number: None

PATIENT
  Sex: Female
  Weight: 77.11 kg

DRUGS (13)
  1. LEVOTHYROXINE -SYNTHROID? [Concomitant]
     Route: 048
  2. PSEUDOEPHEDRINE -SUDAFED? [Concomitant]
     Route: 048
  3. FUROSEMIDE -LASIX?- [Concomitant]
     Route: 048
  4. LISINOPRIL -PRINAVIL?, ZESTORIL?- [Concomitant]
     Route: 048
  5. LETROZOLE -FEMARA? [Concomitant]
     Route: 048
  6. LETROZOLE [Suspect]
     Indication: ANTIOESTROGEN THERAPY
     Dosage: 2.5 MG
     Route: 048
     Dates: start: 20091201, end: 20120305
  7. HYDROCODONE/APAP -VICODIN?- 5/500 [Concomitant]
     Route: 048
  8. CALCIUM CHEWS -A GENERIC FOR VIACTIV? [Concomitant]
     Route: 048
  9. METFORMIN -GLUCOPHAGE? [Concomitant]
     Route: 048
  10. ACETAMINOPHEN EXTENDED RELEASE -TYLENOL? ARTHRITIS FORMULA [Concomitant]
     Route: 048
  11. CALCIUM SENOSIDES -SENOKOT?- [Concomitant]
     Route: 048
  12. DIPHENHYDRAMINE -BENADRYL?- [Concomitant]
     Route: 048
  13. VITAMIN D [Concomitant]
     Route: 048

REACTIONS (4)
  - DISCOMFORT [None]
  - PRURITUS [None]
  - POOR QUALITY SLEEP [None]
  - BREAST DISORDER [None]
